FAERS Safety Report 20808180 (Version 1)
Quarter: 2022Q2

REPORT INFORMATION
  Report Type: Spontaneous
  Country: US (occurrence: US)
  Receive Date: 20220510
  Receipt Date: 20220510
  Transmission Date: 20220721
  Serious: No
  Sender: FDA-Public Use
  Company Number: US-APOTEX-2021AP020129

PATIENT
  Sex: Male

DRUGS (5)
  1. AZELASTINE HYDROCHLORIDE [Suspect]
     Active Substance: AZELASTINE HYDROCHLORIDE
     Indication: Bronchial hyperreactivity
     Dosage: 1 SPRAY IN EACH NOSTRIL TWICE A DAY (IN THE MORNING AND AT NIGHT AROUND 5?OCLOCK OR SO)
     Dates: start: 202106
  2. PROPRANOLOL [Concomitant]
     Active Substance: PROPRANOLOL HYDROCHLORIDE
     Indication: Heart rate irregular
     Dosage: 40 MILLIGRAM, TID
     Route: 065
  3. ERGOCALCIFEROL [Concomitant]
     Active Substance: ERGOCALCIFEROL
     Indication: Vitamin D deficiency
     Dosage: 2000 UNITS, QD
     Route: 065
  4. FLONASE [Concomitant]
     Active Substance: FLUTICASONE PROPIONATE
     Indication: Bronchial hyperreactivity
     Dosage: 1 DOSAGE FORM, BID
  5. MULTIVITAMIN PLUS FISH OIL [Concomitant]
     Indication: Supplementation therapy
     Dosage: 1000 MILLIGRAM
     Route: 065

REACTIONS (9)
  - Heat stroke [Recovered/Resolved]
  - Headache [Recovered/Resolved]
  - Cough [Recovered/Resolved]
  - Dizziness [Recovered/Resolved]
  - Dry mouth [Recovered/Resolved]
  - Dysgeusia [Recovered/Resolved]
  - Vomiting [Recovered/Resolved]
  - Hypertension [Recovered/Resolved]
  - Dry throat [Recovered/Resolved]
